FAERS Safety Report 11352892 (Version 1)
Quarter: 2015Q3

REPORT INFORMATION
  Report Type: Spontaneous
  Country: US (occurrence: US)
  Receive Date: 20150807
  Receipt Date: 20150807
  Transmission Date: 20151125
  Serious: No
  Sender: FDA-Public Use
  Company Number: US-JNJFOC-20150704260

PATIENT
  Age: 74 Year
  Sex: Female
  Weight: 68.04 kg

DRUGS (2)
  1. MENS ROGAINE [Suspect]
     Active Substance: MINOXIDIL
     Indication: PRODUCT USED FOR UNKNOWN INDICATION
     Dosage: ONE DROPPER
     Route: 061
     Dates: start: 201401, end: 201407
  2. MENS ROGAINE [Suspect]
     Active Substance: MINOXIDIL
     Route: 061

REACTIONS (4)
  - Burning sensation [Recovered/Resolved]
  - Alopecia [Unknown]
  - Reaction to drug excipients [Recovered/Resolved]
  - Pruritus [Recovered/Resolved]
